FAERS Safety Report 7450486-3 (Version None)
Quarter: 2011Q2

REPORT INFORMATION
  Report Type: 
  Country: None (occurrence: None)
  Receive Date: 20110502
  Receipt Date: 20110418
  Transmission Date: 20111010
  Serious: Yes (Hospitalization)
  Sender: FDA-Public Use
  Company Number: PHHY2011KR33966

PATIENT
  Age: 34 Year
  Sex: Female

DRUGS (1)
  1. DICLOFENAC SODIUM [Suspect]
     Indication: HEADACHE
     Dosage: UNK
     Route: 030

REACTIONS (10)
  - PURPURA [None]
  - SKIN ULCER [None]
  - EMBOLIA CUTIS MEDICAMENTOSA [None]
  - SWELLING [None]
  - INJECTION SITE NECROSIS [None]
  - ABSCESS [None]
  - FLUID RETENTION [None]
  - SKIN HYPERTROPHY [None]
  - MUSCULOSKELETAL PAIN [None]
  - OEDEMA [None]
